FAERS Safety Report 6098807-0 (Version None)
Quarter: 2009Q1

REPORT INFORMATION
  Report Type: 
  Country: None (occurrence: None)
  Receive Date: 20090302
  Receipt Date: 20090218
  Transmission Date: 20090719
  Serious: Yes (Other)
  Sender: FDA-Public Use
  Company Number: GB-PFIZER INC-2008041333

PATIENT

DRUGS (4)
  1. DEPO-PROVERA SUSPENSION/INJ [Suspect]
     Indication: CONTRACEPTION
     Route: 064
     Dates: start: 19990601, end: 19990601
  2. DEPO-PROVERA SUSPENSION/INJ [Suspect]
     Route: 064
     Dates: start: 20080229, end: 20080229
  3. SERETIDE [Concomitant]
     Indication: ASTHMA
     Dosage: 250 MG, 2X/DAY
     Dates: start: 20000101
  4. SALBUTAMOL [Concomitant]
     Indication: ASTHMA
     Dosage: UNK
     Dates: start: 20000101

REACTIONS (4)
  - CAESAREAN SECTION [None]
  - DRUG EXPOSURE DURING PREGNANCY [None]
  - FOETAL DISTRESS SYNDROME [None]
  - MATERNAL DRUGS AFFECTING FOETUS [None]
